FAERS Safety Report 23063284 (Version 2)
Quarter: 2023Q4

REPORT INFORMATION
  Report Type: Report from Study
  Country: BR (occurrence: BR)
  Receive Date: 20231013
  Receipt Date: 20231027
  Transmission Date: 20240110
  Serious: Yes (Other)
  Sender: FDA-Public Use
  Company Number: BR-002147023-NVSC2023BR211293

PATIENT
  Age: 53 Year
  Sex: Female
  Weight: 67.1 kg

DRUGS (7)
  1. KISQALI [Suspect]
     Active Substance: RIBOCICLIB
     Indication: Breast cancer
     Dosage: UNK
     Route: 065
  2. KISQALI [Suspect]
     Active Substance: RIBOCICLIB
     Indication: Metastases to bone
     Dosage: 3 DOSAGE FORM, QD
     Route: 048
     Dates: start: 20230317
  3. LETROZOLE [Suspect]
     Active Substance: LETROZOLE
     Indication: Breast cancer
     Dosage: 1 DOSAGE FORM, QD (1 TABLET, ONCE A DAY)
     Route: 065
     Dates: start: 20230321
  4. CALCIUM [Concomitant]
     Active Substance: CALCIUM
     Indication: Mineral supplementation
     Dosage: 1 DOSAGE FORM, BID (1 TABLET AFTER LUNCH, 1 TABLET AFTER DINNER)
     Route: 065
     Dates: start: 201808
  5. OMEGA 3 [Concomitant]
     Active Substance: CAPSAICIN
     Indication: Muscle disorder
     Dosage: 2 DOSAGE FORM, QD (TWO TABLETS, 30 MINUTES BEFORE LUNCH)
     Route: 065
     Dates: start: 202305
  6. OMEGA 3 [Concomitant]
     Active Substance: CAPSAICIN
     Indication: Arthropathy
  7. PURAN [Concomitant]
     Active Substance: LEVOTHYROXINE SODIUM
     Indication: Hypothyroidism
     Dosage: 1 DOSAGE FORM, QD (1 TABLET, ONCE A DAY ON AN EMPTY STOMACH)
     Route: 065
     Dates: start: 200905

REACTIONS (4)
  - Metastases to bone [Recovering/Resolving]
  - Decreased immune responsiveness [Recovered/Resolved]
  - Tumour marker abnormal [Recovering/Resolving]
  - General physical condition abnormal [Recovering/Resolving]

NARRATIVE: CASE EVENT DATE: 20230201
